FAERS Safety Report 13523615 (Version 1)
Quarter: 2017Q2

REPORT INFORMATION
  Report Type: Spontaneous
  Country: US (occurrence: US)
  Receive Date: 20170508
  Receipt Date: 20170508
  Transmission Date: 20170830
  Serious: No
  Sender: FDA-Public Use
  Company Number: US-VIFOR (INTERNATIONAL) INC.-VIT-2017-01492

PATIENT
  Age: 36 Year
  Sex: Female

DRUGS (10)
  1. KAYEXALATE [Concomitant]
     Active Substance: SODIUM POLYSTYRENE SULFONATE
  2. COLCRYS [Concomitant]
     Active Substance: COLCHICINE
  3. SODIUM BICARBONATE. [Concomitant]
     Active Substance: SODIUM BICARBONATE
  4. GABAPENTIN. [Concomitant]
     Active Substance: GABAPENTIN
  5. VELTASSA [Suspect]
     Active Substance: PATIROMER
     Indication: HYPERKALAEMIA
     Route: 048
     Dates: start: 20160914
  6. LISINOPRIL. [Concomitant]
     Active Substance: LISINOPRIL
  7. ALLOPURINOL. [Concomitant]
     Active Substance: ALLOPURINOL
  8. FISH OIL [Concomitant]
     Active Substance: FISH OIL
  9. VITAMINS NOS [Concomitant]
     Active Substance: VITAMINS
  10. SIMVASTATIN. [Concomitant]
     Active Substance: SIMVASTATIN

REACTIONS (1)
  - Abdominal discomfort [Unknown]

NARRATIVE: CASE EVENT DATE: 201701
